FAERS Safety Report 16618241 (Version 1)
Quarter: 2019Q3

REPORT INFORMATION
  Report Type: Spontaneous
  Country: BR (occurrence: BR)
  Receive Date: 20190723
  Receipt Date: 20190723
  Transmission Date: 20191004
  Serious: Yes (Other)
  Sender: FDA-Public Use
  Company Number: BR-ASTRAZENECA-2019SF02390

PATIENT
  Age: 25518 Day
  Sex: Female
  Weight: 58 kg

DRUGS (5)
  1. MOTILIUM [Concomitant]
     Active Substance: DOMPERIDONE
  2. IMFINZI [Suspect]
     Active Substance: DURVALUMAB
     Indication: LUNG CARCINOMA CELL TYPE UNSPECIFIED STAGE 0
     Dosage: 580.0MG UNKNOWN
     Route: 042
     Dates: start: 20190606
  3. DEXILANT [Concomitant]
     Active Substance: DEXLANSOPRAZOLE
  4. PURAN [Concomitant]
     Active Substance: LEVOTHYROXINE SODIUM
  5. FRONTAL [Concomitant]
     Active Substance: ALPRAZOLAM

REACTIONS (1)
  - Headache [Recovered/Resolved]

NARRATIVE: CASE EVENT DATE: 20190712
